FAERS Safety Report 10047319 (Version 1)
Quarter: 2014Q1

REPORT INFORMATION
  Report Type: Spontaneous
  Country: US (occurrence: US)
  Receive Date: 20140331
  Receipt Date: 20140331
  Transmission Date: 20141002
  Serious: No
  Sender: FDA-Public Use
  Company Number: US-MYLANLABS-2014S1001363

PATIENT
  Sex: Female

DRUGS (4)
  1. FENTANYL TRANSDERMAL SYSTEM [Suspect]
     Indication: PAIN
     Dosage: CHANGED Q 48H TO 72H
     Route: 062
     Dates: start: 201303, end: 201307
  2. DURAGESIC [Suspect]
     Indication: PAIN
     Dates: end: 2013
  3. ADDERALL [Concomitant]
     Indication: ATTENTION DEFICIT/HYPERACTIVITY DISORDER
  4. SYNTHROID [Concomitant]

REACTIONS (7)
  - Drug ineffective [Not Recovered/Not Resolved]
  - Pain [Not Recovered/Not Resolved]
  - Presyncope [Recovered/Resolved]
  - Constipation [Not Recovered/Not Resolved]
  - Feeling of body temperature change [Recovered/Resolved]
  - Somnolence [Not Recovered/Not Resolved]
  - False negative investigation result [Not Recovered/Not Resolved]
